FAERS Safety Report 18193662 (Version 1)
Quarter: 2020Q3

REPORT INFORMATION
  Report Type: Spontaneous
  Country: AU (occurrence: AU)
  Receive Date: 20200825
  Receipt Date: 20200825
  Transmission Date: 20201103
  Serious: Yes (Other)
  Sender: FDA-Public Use
  Company Number: AU-MYLANLABS-2020M1073046

PATIENT
  Sex: Female

DRUGS (1)
  1. PAXTINE [Suspect]
     Active Substance: PAROXETINE
     Indication: PRODUCT USED FOR UNKNOWN INDICATION
     Dosage: UNK, (3 YEARS)
     Dates: start: 2012, end: 201504

REACTIONS (12)
  - Balance disorder [Unknown]
  - Dyskinesia [Unknown]
  - Somnolence [Unknown]
  - Brain injury [Unknown]
  - Weight decreased [Unknown]
  - Obsessive-compulsive disorder [Unknown]
  - Head discomfort [Unknown]
  - Nervousness [Unknown]
  - Depressed mood [Unknown]
  - Feeling abnormal [Unknown]
  - Thinking abnormal [Unknown]
  - Withdrawal syndrome [Unknown]

NARRATIVE: CASE EVENT DATE: 2015
